FAERS Safety Report 10379086 (Version 3)
Quarter: 2014Q4

REPORT INFORMATION
  Report Type: Spontaneous
  Country: US (occurrence: US)
  Receive Date: 20140812
  Receipt Date: 20141217
  Transmission Date: 20150528
  Serious: Yes (Other)
  Sender: FDA-Public Use
  Company Number: US-GLAXOSMITHKLINE-A1083867A

PATIENT
  Age: 69 Year
  Sex: Female

DRUGS (6)
  1. COUMADIN [Concomitant]
     Active Substance: WARFARIN SODIUM
  2. METOPROLOL [Concomitant]
     Active Substance: METOPROLOL
  3. AMLODIPINE [Concomitant]
     Active Substance: AMLODIPINE BESYLATE
  4. COUGH MEDICATION [Concomitant]
     Active Substance: UNSPECIFIED INGREDIENT
     Indication: COUGH
  5. LEVOTHYROXINE [Concomitant]
     Active Substance: LEVOTHYROXINE
  6. VOTRIENT [Suspect]
     Active Substance: PAZOPANIB HYDROCHLORIDE
     Indication: RENAL CELL CARCINOMA
     Dosage: 4 TABLETS ONCE PER DAY.DOSE DECREASED TO 2 TABLETS.FU 200MG , UNKNOWN FREQUENCY
     Route: 048
     Dates: start: 20140722

REACTIONS (12)
  - Haemorrhage [Recovering/Resolving]
  - Abdominal pain upper [Recovering/Resolving]
  - Back pain [Not Recovered/Not Resolved]
  - Vomiting [Unknown]
  - Blister [Unknown]
  - Palmar-plantar erythrodysaesthesia syndrome [Unknown]
  - Pain [Not Recovered/Not Resolved]
  - Abdominal pain [Unknown]
  - Cough [Not Recovered/Not Resolved]
  - Chills [Unknown]
  - Haemoptysis [Recovering/Resolving]
  - Incorrect dosage administered [Unknown]

NARRATIVE: CASE EVENT DATE: 20140726
